FAERS Safety Report 21776740 (Version 3)
Quarter: 2023Q1

REPORT INFORMATION
  Report Type: Other
  Country: US (occurrence: None)
  Receive Date: 20221226
  Receipt Date: 20230117
  Transmission Date: 20230418
  Serious: Yes (Other)
  Sender: FDA-Public Use
  Company Number: US-ROCHE-3248238

PATIENT
  Age: 81 Year
  Sex: Female

DRUGS (7)
  1. OCREVUS [Suspect]
     Active Substance: OCRELIZUMAB
     Indication: Relapsing-remitting multiple sclerosis
     Dosage: DATE OF SERVICE: 24/MAY/2022, 07/JUN/2022, 02/DEC/2022.
     Route: 042
     Dates: start: 2022
  2. AMPYRA [Concomitant]
     Active Substance: DALFAMPRIDINE
     Route: 065
  3. COPAXONE [Concomitant]
     Active Substance: GLATIRAMER ACETATE
  4. GABAPENTIN [Concomitant]
     Active Substance: GABAPENTIN
  5. TYLENOL [Concomitant]
     Active Substance: ACETAMINOPHEN
  6. CODEINE [Concomitant]
     Active Substance: CODEINE
  7. TECFIDERA [Concomitant]
     Active Substance: DIMETHYL FUMARATE

REACTIONS (3)
  - Herpes zoster [Not Recovered/Not Resolved]
  - Pruritus [Unknown]
  - Pain in extremity [Unknown]

NARRATIVE: CASE EVENT DATE: 20221203
